FAERS Safety Report 7724269-0 (Version None)
Quarter: 2011Q3

REPORT INFORMATION
  Report Type: 
  Country: None (occurrence: None)
  Receive Date: 20110829
  Receipt Date: 20110811
  Transmission Date: 20111222
  Serious: Yes (Death, Other)
  Sender: FDA-Public Use
  Company Number: 2011MA011683

PATIENT
  Age: 53 Year
  Sex: Male

DRUGS (4)
  1. CETUXIMAB (CETUXIMAB) [Suspect]
     Indication: CARCINOMA IN SITU OF SKIN
     Dosage: 400 MG/M2 1X; IV
     Route: 042
  2. DIPHENHYDRAMINE HCL [Suspect]
     Indication: CHEMOTHERAPY
     Dosage: 50 MG, QW, IM
     Route: 030
  3. GEMCITABINE [Suspect]
     Indication: CARCINOMA IN SITU OF SKIN
  4. CIMETIDINE [Suspect]
     Indication: VOMITING
     Dosage: 0.4 GM, QW, IV
     Route: 042

REACTIONS (3)
  - SKIN REACTION [None]
  - HAEMATOTOXICITY [None]
  - RASH [None]
